FAERS Safety Report 7643489-7 (Version None)
Quarter: 2011Q3

REPORT INFORMATION
  Report Type: 
  Country: None (occurrence: None)
  Receive Date: 20110729
  Receipt Date: 20110722
  Transmission Date: 20111222
  Serious: Yes (Hospitalization, Other)
  Sender: FDA-Public Use
  Company Number: US-BAYER-201018311NA

PATIENT
  Age: 20 Year
  Sex: Female
  Weight: 46 kg

DRUGS (12)
  1. QUESTRAN [Concomitant]
  2. YAZ [Suspect]
     Indication: ACNE
     Dosage: UNK UNK, UNK
     Route: 048
     Dates: start: 20090201, end: 20091101
  3. YAZ [Suspect]
     Indication: POLYCYSTIC OVARIES
  4. ZYRTEC [Concomitant]
     Indication: SEASONAL ALLERGY
  5. NAPROXEN SODIUM W/PSEUDOEPHEDRINE HCL [Concomitant]
  6. CIPROFLOXACIN HCL [Concomitant]
  7. FLAGYL [Concomitant]
  8. NSAID'S [Concomitant]
     Dosage: UNK
     Dates: start: 20000101, end: 20090101
  9. LEVAQUIN [Concomitant]
  10. SPIRONOLACTONE [Concomitant]
     Indication: ACNE
  11. SPIRONOLACTONE [Concomitant]
     Indication: POLYCYSTIC OVARIES
     Dosage: UNK
     Dates: start: 20030101, end: 20090101
  12. PROTONIX [Concomitant]

REACTIONS (3)
  - GALLBLADDER DISORDER [None]
  - CHOLECYSTITIS CHRONIC [None]
  - PANCREATITIS [None]
